FAERS Safety Report 21015804 (Version 2)
Quarter: 2023Q2

REPORT INFORMATION
  Report Type: Report from Study
  Country: MX (occurrence: MX)
  Receive Date: 20220628
  Receipt Date: 20230531
  Transmission Date: 20230722
  Serious: Yes (Other)
  Sender: FDA-Public Use
  Company Number: MX-NOVARTISPH-NVSC2022MX147268

PATIENT
  Age: 21 Year
  Sex: Female

DRUGS (1)
  1. GILENYA [Suspect]
     Active Substance: FINGOLIMOD HYDROCHLORIDE
     Indication: Multiple sclerosis
     Dosage: 0.5 MG, QD
     Route: 048
     Dates: start: 20220602

REACTIONS (8)
  - Apnoea [Recovering/Resolving]
  - Blood pressure decreased [Recovering/Resolving]
  - Tachycardia [Recovering/Resolving]
  - Discomfort [Unknown]
  - Middle insomnia [Unknown]
  - Sleep disorder [Not Recovered/Not Resolved]
  - Stress [Unknown]
  - Gastrointestinal disorder [Unknown]

NARRATIVE: CASE EVENT DATE: 20220602
